FAERS Safety Report 21657342 (Version 1)
Quarter: 2022Q4

REPORT INFORMATION
  Report Type: Report from Study
  Country: US (occurrence: US)
  Receive Date: 20221129
  Receipt Date: 20221129
  Transmission Date: 20230112
  Serious: Yes (Other)
  Sender: FDA-Public Use
  Company Number: US-MYLANLABS-2022M1133505

PATIENT

DRUGS (2)
  1. GEMCITABINE [Suspect]
     Active Substance: GEMCITABINE
     Indication: Neoplasm malignant
     Dosage: 1000 MILLIGRAM/SQ. METER, CYCLE(ON DAYS 1, 8, 15 OF A 28 DAY TREATMENT CYCLE)
     Route: 042
  2. ALISERTIB [Suspect]
     Active Substance: ALISERTIB
     Indication: Neoplasm malignant
     Dosage: 50 MILLIGRAM, CYCLE (50MG TWICE A DAY ON DAYS 1-3, 8-10, AND?.
     Route: 048

REACTIONS (6)
  - Hyponatraemia [Unknown]
  - Mucosal inflammation [Unknown]
  - Anaemia [Unknown]
  - Leukopenia [Unknown]
  - Neutropenia [Unknown]
  - Lymphopenia [Unknown]
